FAERS Safety Report 10757572 (Version 3)
Quarter: 2015Q2

REPORT INFORMATION
  Report Type: Spontaneous
  Country: US (occurrence: US)
  Receive Date: 20150203
  Receipt Date: 20150623
  Transmission Date: 20150821
  Serious: Yes (Life-Threatening, Hospitalization)
  Sender: FDA-Public Use
  Company Number: US-BAYER-2015-014748

PATIENT
  Age: 24 Year
  Sex: Female
  Weight: 74 kg

DRUGS (4)
  1. MIRENA [Suspect]
     Active Substance: LEVONORGESTREL
     Indication: CONTRACEPTION
     Dosage: 20 MCG/24HR, CONT
     Route: 015
     Dates: start: 200805, end: 200904
  2. MICROGESTIN [Concomitant]
     Active Substance: ETHINYL ESTRADIOL\NORETHINDRONE ACETATE
     Dosage: UNK
     Dates: start: 2013, end: 2014
  3. ALBUTEROL. [Concomitant]
     Active Substance: ALBUTEROL
     Dosage: UNK
     Dates: start: 1989
  4. MIRENA [Suspect]
     Active Substance: LEVONORGESTREL
     Indication: CONTRACEPTION
     Dosage: 20 MCG/24HR, CONT
     Route: 015
     Dates: start: 201204, end: 20130314

REACTIONS (8)
  - Device issue [None]
  - General physical health deterioration [None]
  - Off label use of device [None]
  - Injury [None]
  - Infection [None]
  - Abdominal pain [None]
  - Pain [None]
  - Uterine perforation [None]

NARRATIVE: CASE EVENT DATE: 201210
